FAERS Safety Report 5058288-2 (Version None)
Quarter: 2006Q2

REPORT INFORMATION
  Report Type: 
  Country: None (occurrence: None)
  Receive Date: 20060627
  Receipt Date: 20051214
  Transmission Date: 20061013
  Serious: Yes (Death)
  Sender: FDA-Public Use
  Company Number: 428772

PATIENT
  Age: 74 Year
  Sex: Female

DRUGS (5)
  1. XELODA [Suspect]
     Indication: COLON CANCER
     Dosage: 1500 MG 2 PER DAY ORAL
     Route: 048
     Dates: start: 20051007
  2. THEOPHYLLINE [Concomitant]
  3. PROTONIX [Concomitant]
  4. TOPROL-XL [Concomitant]
  5. ISOSORBIDE (ISOSORBIDE) [Concomitant]

REACTIONS (1)
  - DISEASE PROGRESSION [None]
